FAERS Safety Report 5911710-9 (Version None)
Quarter: 2008Q4

REPORT INFORMATION
  Report Type: 
  Country: None (occurrence: None)
  Receive Date: 20081003
  Receipt Date: 20080929
  Transmission Date: 20090506
  Serious: Yes (Death)
  Sender: FDA-Public Use
  Company Number: 2007SP018324

PATIENT
  Age: 79 Year
  Sex: Male
  Weight: 49 kg

DRUGS (15)
  1. TEMODAL [Suspect]
     Indication: ANAPLASTIC ASTROCYTOMA
     Dosage: 75 MG/M2;QD;PO; 150 MG/M2;QD;PO
     Route: 048
     Dates: start: 20061225, end: 20070128
  2. TEMODAL [Suspect]
     Indication: ANAPLASTIC ASTROCYTOMA
     Dosage: 75 MG/M2;QD;PO; 150 MG/M2;QD;PO
     Route: 048
     Dates: start: 20070618, end: 20070622
  3. COTRIM [Concomitant]
  4. ALEVIATIN [Concomitant]
  5. MYSTAN [Concomitant]
  6. SYMMETREL [Concomitant]
  7. SERMION [Concomitant]
  8. ALDACTONE [Concomitant]
  9. TAGAMET [Concomitant]
  10. NITRODERM [Concomitant]
  11. HOKUNALIN:TAPE [Concomitant]
  12. GLUCONSAN K [Concomitant]
  13. MOBACIN [Concomitant]
  14. DALACIN S [Concomitant]
  15. FINIBAX [Concomitant]

REACTIONS (2)
  - ACCIDENT [None]
  - PNEUMONIA ASPIRATION [None]
